FAERS Safety Report 4701138-1 (Version None)
Quarter: 2005Q2

REPORT INFORMATION
  Report Type: 
  Country: None (occurrence: None)
  Receive Date: 20050628
  Receipt Date: 20050623
  Transmission Date: 20051028
  Serious: Yes (Life-Threatening, Hospitalization)
  Sender: FDA-Public Use
  Company Number: 168

PATIENT
  Age: 57 Year
  Sex: Male
  Weight: 75 kg

DRUGS (3)
  1. MELPHALAN [Suspect]
     Indication: MULTIPLE MYELOMA
     Dosage: 384MG SINGLE DOSE
     Route: 042
     Dates: start: 20050505, end: 20050505
  2. THALIDOMIDE [Suspect]
     Route: 048
     Dates: start: 20050316, end: 20050425
  3. DEXAMETHASONE [Suspect]
     Route: 048
     Dates: start: 20040405, end: 20050408

REACTIONS (4)
  - LEUKOPENIA [None]
  - ORTHOSTATIC HYPOTENSION [None]
  - SINUS TACHYCARDIA [None]
  - SYNCOPE [None]
